FAERS Safety Report 9518573 (Version 1)
Quarter: 2013Q1

REPORT INFORMATION
  Report Type: Spontaneous
  Country: US (occurrence: None)
  Receive Date: 20130305
  Receipt Date: 20130305
  Transmission Date: 20140127
  Serious: Yes (Hospitalization, Other)
  Sender: FDA-Public Use
  Company Number: 163-21880-11123586

PATIENT
  Age: 65 Year
  Sex: Female
  Weight: 96.16 kg

DRUGS (21)
  1. REVLIMID [Suspect]
     Indication: PLASMA CELL MYELOMA
     Dosage: 25 MG, 21 IN 21 D, PO?
     Route: 048
     Dates: start: 20111110, end: 2011
  2. ASPIRIN (ACETYLSALICYLIC ACID) [Concomitant]
  3. NORVASC (AMLODIPINE BESILATE) [Concomitant]
  4. FENTANYL (FENTANYL) [Concomitant]
  5. CARTIA XT (DILTIAZEM) [Concomitant]
  6. PROCHLORPERAZINE MALEATE (PROCHLORPERAZINE MALEATE) [Concomitant]
  7. OMEPRAZOLE (OMEPRAZOLE) [Concomitant]
  8. ZOCOR (SIMVASTATIN) [Concomitant]
  9. CALCIUM 500 + D (CALCIUM + VIT D) [Concomitant]
  10. VICODIN ES (VICODIN) [Concomitant]
  11. DEXAMETHASONE (DEXAMETHASONE) [Concomitant]
  12. WARFARIN (WARFARIN) [Concomitant]
  13. LASIX (FUROSEMIDE) [Concomitant]
  14. LOMOTIL (LOMOTIL) [Concomitant]
  15. COLACE (DOCUSATE SODIUM) [Concomitant]
  16. LOPRESSOR (METOPROLOL TARTRATE) [Concomitant]
  17. BACTRIM (BACTRIM) [Concomitant]
  18. CALCIUM (CALCIUM) [Concomitant]
  19. VITAMIN D3 (COLECALCIFEROL) [Concomitant]
  20. VITAMIN C [Concomitant]
  21. PERIDEX (CHLORHEXIDINE GLUCONATE) [Concomitant]

REACTIONS (3)
  - Respiratory failure [None]
  - Pneumonia [None]
  - Sepsis [None]
